FAERS Safety Report 11734359 (Version 2)
Quarter: 2015Q4

REPORT INFORMATION
  Report Type: Spontaneous
  Country: US (occurrence: US)
  Receive Date: 20151113
  Receipt Date: 20151204
  Transmission Date: 20160304
  Serious: Yes (Other)
  Sender: FDA-Public Use
  Company Number: US-BIOGENIDEC-2015BI149655

PATIENT
  Age: 53 Year
  Sex: Female
  Weight: 108 kg

DRUGS (35)
  1. AMPYRA [Concomitant]
     Active Substance: DALFAMPRIDINE
     Indication: MULTIPLE SCLEROSIS
     Route: 048
     Dates: end: 201506
  2. AMPYRA [Concomitant]
     Active Substance: DALFAMPRIDINE
     Indication: GAIT DISTURBANCE
     Route: 048
  3. LABETALOL [Concomitant]
     Active Substance: LABETALOL\LABETALOL HYDROCHLORIDE
  4. TRANDATE [Concomitant]
     Active Substance: LABETALOL HYDROCHLORIDE
  5. LYRICA [Concomitant]
     Active Substance: PREGABALIN
  6. AMPYRA [Concomitant]
     Active Substance: DALFAMPRIDINE
     Indication: MULTIPLE SCLEROSIS
     Route: 048
     Dates: end: 201210
  7. AMPYRA [Concomitant]
     Active Substance: DALFAMPRIDINE
     Indication: GAIT DISTURBANCE
     Route: 048
     Dates: end: 201210
  8. AMPYRA [Concomitant]
     Active Substance: DALFAMPRIDINE
     Indication: PERONEAL NERVE PALSY
     Route: 048
     Dates: end: 2014
  9. AMPYRA [Concomitant]
     Active Substance: DALFAMPRIDINE
     Indication: PERONEAL NERVE PALSY
     Route: 048
     Dates: end: 2014
  10. AMPYRA [Concomitant]
     Active Substance: DALFAMPRIDINE
     Indication: PERONEAL NERVE PALSY
     Route: 048
  11. METFORMIN [Concomitant]
     Active Substance: METFORMIN HYDROCHLORIDE
     Indication: DIABETES MELLITUS
     Route: 048
  12. LIPITOR [Concomitant]
     Active Substance: ATORVASTATIN CALCIUM
  13. AMPYRA [Concomitant]
     Active Substance: DALFAMPRIDINE
     Indication: MULTIPLE SCLEROSIS
     Route: 048
     Dates: end: 2014
  14. AMPYRA [Concomitant]
     Active Substance: DALFAMPRIDINE
     Indication: GAIT DISTURBANCE
     Route: 048
     Dates: end: 2014
  15. AMPYRA [Concomitant]
     Active Substance: DALFAMPRIDINE
     Indication: PERONEAL NERVE PALSY
     Route: 048
  16. LANTUS [Concomitant]
     Active Substance: INSULIN GLARGINE
  17. ALPRAZOLAM. [Concomitant]
     Active Substance: ALPRAZOLAM
  18. AMPYRA [Concomitant]
     Active Substance: DALFAMPRIDINE
     Indication: PERONEAL NERVE PALSY
     Route: 048
     Dates: end: 201210
  19. AMPYRA [Concomitant]
     Active Substance: DALFAMPRIDINE
     Indication: GAIT DISTURBANCE
     Route: 048
     Dates: end: 201506
  20. HYDROCHLOROTHIAZIDE. [Concomitant]
     Active Substance: HYDROCHLOROTHIAZIDE
  21. HUMALOG [Concomitant]
     Active Substance: INSULIN LISPRO
  22. ATENOLOL. [Concomitant]
     Active Substance: ATENOLOL
  23. MELOXICAM. [Concomitant]
     Active Substance: MELOXICAM
  24. AMPYRA [Concomitant]
     Active Substance: DALFAMPRIDINE
     Indication: PERONEAL NERVE PALSY
     Route: 048
     Dates: end: 201506
  25. BETASERON [Concomitant]
     Active Substance: INTERFERON BETA-1B
  26. AMPYRA [Concomitant]
     Active Substance: DALFAMPRIDINE
     Indication: PERONEAL NERVE PALSY
     Route: 048
     Dates: end: 201210
  27. MOBIC [Concomitant]
     Active Substance: MELOXICAM
  28. LASIX [Concomitant]
     Active Substance: FUROSEMIDE
  29. AMPYRA [Concomitant]
     Active Substance: DALFAMPRIDINE
     Indication: PERONEAL NERVE PALSY
     Route: 048
     Dates: end: 201506
  30. AMPYRA [Concomitant]
     Active Substance: DALFAMPRIDINE
     Indication: MULTIPLE SCLEROSIS
     Route: 048
  31. PROZAC [Concomitant]
     Active Substance: FLUOXETINE HYDROCHLORIDE
  32. LEVOTHYROXINE. [Concomitant]
     Active Substance: LEVOTHYROXINE
  33. TECFIDERA [Suspect]
     Active Substance: DIMETHYL FUMARATE
     Indication: MULTIPLE SCLEROSIS
     Route: 048
  34. TOVIAZ [Concomitant]
     Active Substance: FESOTERODINE FUMARATE
     Dates: start: 20151028
  35. VASOTEC [Concomitant]
     Active Substance: ENALAPRIL MALEATE

REACTIONS (2)
  - Blood glucose increased [Not Recovered/Not Resolved]
  - Obesity [Not Recovered/Not Resolved]
